FAERS Safety Report 4433855-5 (Version None)
Quarter: 2004Q3

REPORT INFORMATION
  Report Type: 
  Country: None (occurrence: None)
  Receive Date: 20040826
  Receipt Date: 20040825
  Transmission Date: 20050211
  Serious: Yes (Hospitalization)
  Sender: FDA-Public Use
  Company Number: US-GLAXOSMITHKLINE-A0523449A

PATIENT
  Age: 8 Year
  Sex: Male

DRUGS (4)
  1. LITHIUM CARBONATE [Suspect]
     Indication: ATTENTION DEFICIT/HYPERACTIVITY DISORDER
     Dosage: 450MG TWICE PER DAY
     Route: 048
     Dates: start: 20040524, end: 20040628
  2. RISPERDAL [Concomitant]
  3. CLONAZEPAM [Concomitant]
  4. STRATTERA [Concomitant]

REACTIONS (11)
  - AMNESIA [None]
  - APHASIA [None]
  - CONVULSION [None]
  - DELIRIUM [None]
  - DIARRHOEA [None]
  - DROOLING [None]
  - FALL [None]
  - MUSCLE DISORDER [None]
  - MYDRIASIS [None]
  - THERAPEUTIC AGENT TOXICITY [None]
  - VOMITING [None]
